FAERS Safety Report 6667108-1 (Version None)
Quarter: 2010Q2

REPORT INFORMATION
  Report Type: 
  Country: None (occurrence: None)
  Receive Date: 20100405
  Receipt Date: 20100325
  Transmission Date: 20101027
  Serious: Yes (Death, Other)
  Sender: FDA-Public Use
  Company Number: FR-JNJFOC-20100307640

PATIENT
  Age: 52 Year
  Sex: Male

DRUGS (5)
  1. ABCIXIMAB [Suspect]
     Indication: ACUTE CORONARY SYNDROME
     Dosage: BOLUS
     Route: 042
  2. ABCIXIMAB [Suspect]
     Dosage: PERFUSION FOR 12 HOURS
     Route: 042
  3. ASPIRIN [Concomitant]
  4. CLOPIDOGREL [Concomitant]
  5. HEPARIN [Concomitant]

REACTIONS (4)
  - DRUG SPECIFIC ANTIBODY PRESENT [None]
  - MULTI-ORGAN FAILURE [None]
  - THROMBOCYTOPENIA [None]
  - THROMBOSIS [None]
